FAERS Safety Report 16344342 (Version 1)
Quarter: 2019Q2

REPORT INFORMATION
  Report Type: Spontaneous
  Country: FR (occurrence: FR)
  Receive Date: 20190522
  Receipt Date: 20190522
  Transmission Date: 20190711
  Serious: Yes (Hospitalization)
  Sender: FDA-Public Use
  Company Number: FR-MYLANLABS-2019M1047512

PATIENT
  Age: 33 Year
  Sex: Female
  Weight: 49 kg

DRUGS (3)
  1. ECONAZOLE. [Suspect]
     Active Substance: ECONAZOLE NITRATE
     Indication: FUNGAL SKIN INFECTION
     Dosage: 2 DOSAGE FORM, QD
     Route: 003
     Dates: start: 20180830, end: 20180903
  2. ACIDE FOLIQUE [Concomitant]
     Active Substance: FOLIC ACID
     Dosage: 5 MILLIGRAM, QD
     Route: 048
  3. ECONAZOLE. [Suspect]
     Active Substance: ECONAZOLE NITRATE
     Indication: VULVOVAGINAL MYCOTIC INFECTION
     Dosage: 30 MILLIGRAM, QD
     Route: 067
     Dates: start: 20180830, end: 20180903

REACTIONS (2)
  - Eosinophilia [Recovering/Resolving]
  - Rash maculo-papular [Recovered/Resolved]

NARRATIVE: CASE EVENT DATE: 20180903
